APPROVED DRUG PRODUCT: PENTACEF
Active Ingredient: CEFTAZIDIME
Strength: 10GM/VIAL
Dosage Form/Route: INJECTABLE;INJECTION
Application: A064008 | Product #002
Applicant: GLAXOSMITHKLINE
Approved: Mar 31, 1992 | RLD: No | RS: No | Type: DISCN